FAERS Safety Report 11327434 (Version 1)
Quarter: 2015Q3

REPORT INFORMATION
  Report Type: Spontaneous
  Country: US (occurrence: US)
  Receive Date: 20150731
  Receipt Date: 20150731
  Transmission Date: 20151125
  Serious: No
  Sender: FDA-Public Use
  Company Number: US-PFIZER INC-2015252589

PATIENT
  Age: 47 Year
  Sex: Female

DRUGS (1)
  1. PRISTIQ EXTENDED RELEASE [Suspect]
     Active Substance: DESVENLAFAXINE SUCCINATE
     Dosage: 100 MG, DAILY (IN THE MORNING)

REACTIONS (4)
  - Asthenia [Unknown]
  - Influenza like illness [Unknown]
  - Pain [Unknown]
  - Insomnia [Unknown]
